FAERS Safety Report 19398193 (Version 1)
Quarter: 2021Q2

REPORT INFORMATION
  Report Type: Spontaneous
  Country: US (occurrence: US)
  Receive Date: 20210610
  Receipt Date: 20210610
  Transmission Date: 20210717
  Serious: Yes (Life-Threatening, Other)
  Sender: FDA-Public Use
  Company Number: US-HIKMA PHARMACEUTICALS USA INC.-US-H14001-21-54624

PATIENT
  Age: 27 Year
  Sex: Female

DRUGS (3)
  1. FLUOROURACIL. [Suspect]
     Active Substance: FLUOROURACIL
     Indication: NASAL SINUS CANCER
     Dosage: UNKNOWN
     Route: 065
  2. PACLITAXEL. [Suspect]
     Active Substance: PACLITAXEL
     Indication: NASAL SINUS CANCER
     Dosage: UNKNOWN
     Route: 065
  3. CISPLATIN. [Suspect]
     Active Substance: CISPLATIN
     Indication: NASAL SINUS CANCER
     Dosage: UNKNOWN
     Route: 065

REACTIONS (2)
  - Maternal exposure during pregnancy [Unknown]
  - Cerebrospinal fluid leakage [Unknown]
